FAERS Safety Report 6391183-5 (Version None)
Quarter: 2009Q4

REPORT INFORMATION
  Report Type: 
  Country: None (occurrence: None)
  Receive Date: 20091007
  Receipt Date: 20090930
  Transmission Date: 20100525
  Serious: Yes (Death)
  Sender: FDA-Public Use
  Company Number: FI-PFIZER INC-2009276805

PATIENT
  Age: 15 Year

DRUGS (2)
  1. ALPRAZOLAM [Suspect]
  2. BUPRENORPHINE [Suspect]

REACTIONS (1)
  - DRUG TOXICITY [None]
